FAERS Safety Report 8343236-X (Version None)
Quarter: 2012Q1

REPORT INFORMATION
  Report Type: 
  Country: None (occurrence: None)
  Receive Date: 20120330
  Receipt Date: 20110927
  Transmission Date: 20120608
  Serious: Yes (Other)
  Sender: FDA-Public Use
  Company Number: PHHY2011US69452

PATIENT
  Age: 94 Year
  Sex: Male

DRUGS (2)
  1. IMODIUM [Concomitant]
  2. EXELON [Suspect]
     Dosage: 4.6 MG/24 HOURS, TRANSDERMAL
     Route: 062

REACTIONS (1)
  - DIARRHOEA [None]
